FAERS Safety Report 11259569 (Version 1)
Quarter: 2015Q3

REPORT INFORMATION
  Report Type: Spontaneous
  Country: JP (occurrence: JP)
  Receive Date: 20150710
  Receipt Date: 20150710
  Transmission Date: 20151125
  Serious: Yes (Death, Disabling)
  Sender: FDA-Public Use
  Company Number: JP-TEVA-563271ISR

PATIENT
  Age: 76 Year
  Sex: Female
  Weight: 40 kg

DRUGS (4)
  1. FENTOS [Concomitant]
     Active Substance: FENTANYL
     Indication: CANCER PAIN
     Dosage: 2 MILLIGRAM DAILY;
     Route: 062
     Dates: start: 20140808
  2. PRIMPERAN [Concomitant]
     Active Substance: METOCLOPRAMIDE HYDROCHLORIDE
     Indication: NAUSEA
     Dosage: 10 MILLIGRAM DAILY;
     Route: 042
     Dates: end: 20140805
  3. E-FEN BUCCAL [Suspect]
     Active Substance: FENTANYL CITRATE
     Indication: BREAKTHROUGH PAIN
     Dosage: DAILY DOSE: 0-200 MICROGRAM
     Route: 002
     Dates: start: 20140702, end: 20140711
  4. E-FEN BUCCAL [Suspect]
     Active Substance: FENTANYL CITRATE
     Route: 002
     Dates: start: 20140712, end: 20140808

REACTIONS (6)
  - Constipation [Not Recovered/Not Resolved]
  - Vomiting [Not Recovered/Not Resolved]
  - Somnolence [Not Recovered/Not Resolved]
  - Pancreatic carcinoma [Fatal]
  - Nausea [Not Recovered/Not Resolved]
  - Electrolyte imbalance [Unknown]

NARRATIVE: CASE EVENT DATE: 20140702
